FAERS Safety Report 4558550-3 (Version None)
Quarter: 2005Q1

REPORT INFORMATION
  Report Type: 
  Country: None (occurrence: None)
  Receive Date: 20050119
  Receipt Date: 20050110
  Transmission Date: 20050727
  Serious: Yes (Hospitalization)
  Sender: FDA-Public Use
  Company Number: GRANT-ZONI-0018

PATIENT
  Age: 43 Year
  Weight: 95 kg

DRUGS (11)
  1. ZONEGRAN [Suspect]
     Indication: EPILEPSY
     Dosage: 400 MG, 2 IN 1 D, ORAL
     Route: 048
     Dates: start: 20040422, end: 20041221
  2. KEPPRA [Concomitant]
  3. LAMICTAL [Concomitant]
  4. DEPAKOTE [Concomitant]
  5. ACTONEL [Concomitant]
  6. SYNTHROID [Concomitant]
  7. SURFAK (DOCUSATE CALCIUM) [Concomitant]
  8. VITAMIN C (ASCORBIC ACID) [Concomitant]
  9. OSCAL D (CALCIUM D3 ^STADA^) [Concomitant]
  10. MOTRIN [Concomitant]
  11. MULTIVITAMIN (MULTIVITAMINS) [Concomitant]

REACTIONS (4)
  - ASTHENIA [None]
  - HYPOTHERMIA [None]
  - PANCYTOPENIA [None]
  - RASH [None]
